FAERS Safety Report 5284896-X (Version None)
Quarter: 2007Q2

REPORT INFORMATION
  Report Type: 
  Country: None (occurrence: None)
  Receive Date: 20070403
  Receipt Date: 20070326
  Transmission Date: 20071010
  Serious: Yes (Other)
  Sender: FDA-Public Use
  Company Number: US-AVENTIS-200712191US

PATIENT
  Sex: Female

DRUGS (2)
  1. LANTUS [Suspect]
     Dosage: DOSE: UNK
     Dates: start: 20060901
  2. OPTICLIK GREY [Suspect]
     Dates: start: 20060901

REACTIONS (1)
  - VISUAL DISTURBANCE [None]
